FAERS Safety Report 24956682 (Version 2)
Quarter: 2025Q3

REPORT INFORMATION
  Report Type: Spontaneous
  Country: EU (occurrence: EU)
  Receive Date: 20250211
  Receipt Date: 20250709
  Transmission Date: 20251020
  Serious: Yes (Other)
  Sender: MYLAN
  Company Number: EU-SUN PHARMACEUTICAL INDUSTRIES LTD-2025RR-490611

PATIENT
  Age: 62 Year
  Sex: Male

DRUGS (28)
  1. OXALIPLATIN [Suspect]
     Active Substance: OXALIPLATIN
     Indication: Metastases to liver
  2. OXALIPLATIN [Suspect]
     Active Substance: OXALIPLATIN
     Indication: Adenocarcinoma pancreas
     Route: 065
  3. OXALIPLATIN [Suspect]
     Active Substance: OXALIPLATIN
     Indication: Pancreatic carcinoma metastatic
     Route: 065
  4. OXALIPLATIN [Suspect]
     Active Substance: OXALIPLATIN
  5. IRINOTECAN [Suspect]
     Active Substance: IRINOTECAN
     Indication: Adenocarcinoma pancreas
  6. IRINOTECAN [Suspect]
     Active Substance: IRINOTECAN
     Indication: Metastases to liver
     Route: 065
  7. IRINOTECAN [Suspect]
     Active Substance: IRINOTECAN
     Indication: Pancreatic carcinoma metastatic
     Route: 065
  8. IRINOTECAN [Suspect]
     Active Substance: IRINOTECAN
  9. FLUOROURACIL [Suspect]
     Active Substance: FLUOROURACIL
     Indication: Adenocarcinoma pancreas
  10. FLUOROURACIL [Suspect]
     Active Substance: FLUOROURACIL
     Indication: Metastases to liver
     Route: 065
  11. FLUOROURACIL [Suspect]
     Active Substance: FLUOROURACIL
     Indication: Pancreatic carcinoma metastatic
     Route: 065
  12. FLUOROURACIL [Suspect]
     Active Substance: FLUOROURACIL
  13. LEUCOVORIN CALCIUM [Suspect]
     Active Substance: LEUCOVORIN CALCIUM
     Indication: Adenocarcinoma pancreas
  14. LEUCOVORIN CALCIUM [Suspect]
     Active Substance: LEUCOVORIN CALCIUM
     Indication: Metastases to liver
     Route: 065
  15. LEUCOVORIN CALCIUM [Suspect]
     Active Substance: LEUCOVORIN CALCIUM
     Indication: Pancreatic carcinoma metastatic
     Route: 065
  16. LEUCOVORIN CALCIUM [Suspect]
     Active Substance: LEUCOVORIN CALCIUM
  17. ASPIRIN [Suspect]
     Active Substance: ASPIRIN
     Indication: Cerebrovascular accident
     Dosage: 75 MILLIGRAM, QD (DAILY)
  18. ASPIRIN [Suspect]
     Active Substance: ASPIRIN
     Dosage: 75 MILLIGRAM, QD (DAILY)
     Route: 065
  19. ASPIRIN [Suspect]
     Active Substance: ASPIRIN
     Dosage: 75 MILLIGRAM, QD (DAILY)
     Route: 065
  20. ASPIRIN [Suspect]
     Active Substance: ASPIRIN
     Dosage: 75 MILLIGRAM, QD (DAILY)
  21. ENOXAPARIN SODIUM [Suspect]
     Active Substance: ENOXAPARIN SODIUM
     Indication: Anticoagulant therapy
     Dosage: UNK, BID (TWICE A DAY)
  22. ENOXAPARIN SODIUM [Suspect]
     Active Substance: ENOXAPARIN SODIUM
     Dosage: UNK, BID (TWICE A DAY)
     Route: 065
  23. ENOXAPARIN SODIUM [Suspect]
     Active Substance: ENOXAPARIN SODIUM
     Dosage: UNK, BID (TWICE A DAY)
     Route: 065
  24. ENOXAPARIN SODIUM [Suspect]
     Active Substance: ENOXAPARIN SODIUM
     Dosage: UNK, BID (TWICE A DAY)
  25. APIXABAN [Suspect]
     Active Substance: APIXABAN
     Indication: Anticoagulant therapy
     Dosage: 5 MILLIGRAM, BID
  26. APIXABAN [Suspect]
     Active Substance: APIXABAN
     Dosage: 5 MILLIGRAM, BID
     Route: 065
  27. APIXABAN [Suspect]
     Active Substance: APIXABAN
     Dosage: 5 MILLIGRAM, BID
     Route: 065
  28. APIXABAN [Suspect]
     Active Substance: APIXABAN
     Dosage: 5 MILLIGRAM, BID

REACTIONS (6)
  - Motor dysfunction [Unknown]
  - Condition aggravated [Unknown]
  - Ischaemic stroke [Unknown]
  - Dysarthria [Unknown]
  - Paraesthesia [Unknown]
  - Drug ineffective [Unknown]
